FAERS Safety Report 9064011 (Version 1)
Quarter: 2013Q1

REPORT INFORMATION
  Report Type: Spontaneous
  Country: ES (occurrence: ES)
  Receive Date: 20130213
  Receipt Date: 20130213
  Transmission Date: 20140127
  Serious: Yes (Other)
  Sender: FDA-Public Use
  Company Number: ES-ASTRAZENECA-2013SE08611

PATIENT
  Age: 68 Year
  Sex: Female

DRUGS (5)
  1. SEROQUEL PROLONG [Suspect]
     Indication: MAJOR DEPRESSION
     Route: 048
     Dates: start: 20120509, end: 20120704
  2. CYMBALTA [Interacting]
     Indication: MAJOR DEPRESSION
     Route: 048
     Dates: start: 20120509, end: 20120704
  3. TRILEPTAL [Interacting]
     Indication: MAJOR DEPRESSION
     Route: 048
     Dates: start: 20120621, end: 20120704
  4. STILNOX [Concomitant]
     Indication: INSOMNIA
     Dosage: DAILY
     Route: 048
     Dates: start: 20120509, end: 20120708
  5. TRANXILIUM [Concomitant]
     Indication: ANXIETY
     Route: 048
     Dates: start: 20120509, end: 20120708

REACTIONS (2)
  - Drug interaction [Unknown]
  - Inappropriate antidiuretic hormone secretion [Recovered/Resolved]
